FAERS Safety Report 6707290-0 (Version None)
Quarter: 2010Q2

REPORT INFORMATION
  Report Type: 
  Country: None (occurrence: None)
  Receive Date: 20100503
  Receipt Date: 20090115
  Transmission Date: 20101027
  Serious: No
  Sender: FDA-Public Use
  Company Number: US-ASTRAZENECA-2008UW22215

PATIENT
  Age: 34 Year
  Sex: Male
  Weight: 98.4 kg

DRUGS (1)
  1. NEXIUM [Suspect]
     Indication: REFLUX LARYNGITIS
     Route: 048

REACTIONS (1)
  - GASTROOESOPHAGEAL REFLUX DISEASE [None]
